FAERS Safety Report 17655847 (Version 1)
Quarter: 2020Q2

REPORT INFORMATION
  Report Type: Spontaneous
  Country: US (occurrence: US)
  Receive Date: 20200410
  Receipt Date: 20200410
  Transmission Date: 20200713
  Serious: Yes (Other)
  Sender: FDA-Public Use
  Company Number: None

PATIENT
  Age: 77 Year
  Sex: Female

DRUGS (1)
  1. VERZENIO [Suspect]
     Active Substance: ABEMACICLIB
     Indication: BREAST CANCER
     Route: 048
     Dates: start: 20200219, end: 20200410

REACTIONS (4)
  - Stomatitis [None]
  - Nausea [None]
  - Diarrhoea [None]
  - Alopecia [None]

NARRATIVE: CASE EVENT DATE: 20200410
